FAERS Safety Report 4847846-3 (Version None)
Quarter: 2005Q4

REPORT INFORMATION
  Report Type: 
  Country: None (occurrence: None)
  Receive Date: 20051207
  Receipt Date: 20051128
  Transmission Date: 20060501
  Serious: Yes (Death)
  Sender: FDA-Public Use
  Company Number: TR-ABBOTT-05P-161-0318460-00

PATIENT
  Sex: Male
  Weight: 85 kg

DRUGS (1)
  1. KLACID MR TABLETS [Suspect]
     Indication: PNEUMONIA
     Route: 048

REACTIONS (1)
  - MYOCARDIAL INFARCTION [None]
